FAERS Safety Report 4346934-8 (Version None)
Quarter: 2004Q2

REPORT INFORMATION
  Report Type: 
  Country: None (occurrence: None)
  Receive Date: 20040426
  Receipt Date: 20040415
  Transmission Date: 20050107
  Serious: Yes (Hospitalization)
  Sender: FDA-Public Use
  Company Number: JP-BRISTOL-MYERS SQUIBB COMPANY-12567897

PATIENT
  Age: 29 Year
  Sex: Male

DRUGS (6)
  1. EFAVIRENZ CAPS [Suspect]
     Indication: HIV INFECTION
     Route: 048
  2. ETHAMBUTOL HCL [Concomitant]
  3. ISONIAZID [Concomitant]
  4. LAMIVUDINE [Concomitant]
  5. RIFAMPIN [Concomitant]
  6. STAVUDINE [Concomitant]

REACTIONS (2)
  - IMMUNE RECONSTITUTION SYNDROME [None]
  - MYCOBACTERIAL INFECTION [None]
